FAERS Safety Report 10189129 (Version 1)
Quarter: 2014Q2

REPORT INFORMATION
  Report Type: Spontaneous
  Country: FR (occurrence: FR)
  Receive Date: 20140522
  Receipt Date: 20140522
  Transmission Date: 20141212
  Serious: Yes (Hospitalization, Other)
  Sender: FDA-Public Use
  Company Number: FR-PFIZER INC-2014134156

PATIENT
  Age: 35 Year
  Sex: Male
  Weight: 127 kg

DRUGS (5)
  1. DOSTINEX [Suspect]
     Dosage: 0.5 DF,  TWICE A WEEK
     Route: 048
     Dates: start: 2005
  2. DOSTINEX [Suspect]
     Dosage: 2 DF, TWICE A WEEK
     Route: 048
     Dates: start: 2008, end: 200902
  3. NORPROLAC [Suspect]
     Indication: BACK PAIN
     Dosage: 1 DF, SINGLE
     Route: 048
     Dates: start: 20110715, end: 20110715
  4. HYDROCORTISONE [Concomitant]
     Dosage: 20 MG, DAILY
  5. LEVOTHYROX [Concomitant]
     Dosage: 225 UG, DAILY

REACTIONS (13)
  - Interstitial lung disease [Recovered/Resolved]
  - Drug administration error [Recovered/Resolved]
  - Anaphylactic reaction [Recovered/Resolved]
  - Drug intolerance [None]
  - Bronchial haemorrhage [None]
  - Dilatation ventricular [None]
  - Sleep apnoea syndrome [None]
  - Arthralgia [None]
  - Joint effusion [None]
  - Visual field defect [None]
  - Back pain [None]
  - Wrong drug administered [None]
  - Gastrectomy [None]
